FAERS Safety Report 4467708-3 (Version None)
Quarter: 2004Q4

REPORT INFORMATION
  Report Type: 
  Country: None (occurrence: None)
  Receive Date: 20041007
  Receipt Date: 20040924
  Transmission Date: 20050328
  Serious: Yes (Death, Hospitalization)
  Sender: FDA-Public Use
  Company Number: AT-JNJFOC-20040909128

PATIENT
  Age: 57 Year
  Sex: Male
  Weight: 64 kg

DRUGS (10)
  1. REMICADE [Suspect]
     Route: 042
  2. LOSEC [Concomitant]
     Indication: PROPHYLAXIS
     Route: 049
  3. NEUROBION FORTE [Concomitant]
     Route: 049
  4. NEUROBION FORTE [Concomitant]
     Route: 049
  5. NEUROBION FORTE [Concomitant]
     Indication: PAIN
     Route: 049
  6. NEURONTIN [Concomitant]
     Indication: PAIN
     Route: 049
  7. SAROTEN [Concomitant]
     Indication: PAIN
     Route: 049
  8. SERACTIL [Concomitant]
     Indication: PAIN
     Route: 049
  9. TRAMAL [Concomitant]
     Indication: PAIN
     Route: 049
  10. WARFARIN SODIUM [Concomitant]
     Route: 049

REACTIONS (21)
  - ACUTE RESPIRATORY DISTRESS SYNDROME [None]
  - ARTERIOSCLEROSIS [None]
  - BENIGN PROSTATIC HYPERPLASIA [None]
  - CANDIDIASIS [None]
  - CARDIOVASCULAR DISORDER [None]
  - CEREBRAL ATHEROSCLEROSIS [None]
  - CYTOMEGALOVIRUS TEST POSITIVE [None]
  - DILATATION ATRIAL [None]
  - HAEMANGIOMA OF LIVER [None]
  - HEPATIC FAILURE [None]
  - HEPATIC FIBROSIS [None]
  - HEPATIC STEATOSIS [None]
  - MULTI-ORGAN FAILURE [None]
  - NEPHROTIC SYNDROME [None]
  - PNEUMONIA LEGIONELLA [None]
  - RENAL ARTERIOSCLEROSIS [None]
  - RENAL FAILURE [None]
  - SEPSIS [None]
  - STAPHYLOCOCCAL INFECTION [None]
  - TRICUSPID VALVE INCOMPETENCE [None]
  - VENTRICULAR HYPERTROPHY [None]
